FAERS Safety Report 5704850-0 (Version None)
Quarter: 2008Q2

REPORT INFORMATION
  Report Type: 
  Country: None (occurrence: None)
  Receive Date: 20080414
  Receipt Date: 20080402
  Transmission Date: 20081010
  Serious: Yes (Other)
  Sender: FDA-Public Use
  Company Number: CN-PFIZER INC-2008028791

PATIENT
  Age: 50 Year
  Sex: Male

DRUGS (1)
  1. VIAGRA [Suspect]
     Indication: ERECTILE DYSFUNCTION
     Dosage: TEXT:50MG  AS NEEDED TDD:50MG
     Route: 048
     Dates: start: 20080101, end: 20080301

REACTIONS (5)
  - LEUKAEMIA [None]
  - LIVER FUNCTION TEST ABNORMAL [None]
  - LYMPHADENOPATHY [None]
  - NASOPHARYNGITIS [None]
  - WHITE BLOOD CELL COUNT INCREASED [None]
